FAERS Safety Report 5821819-6 (Version None)
Quarter: 2008Q3

REPORT INFORMATION
  Report Type: 
  Country: None (occurrence: None)
  Receive Date: 20080724
  Receipt Date: 20080723
  Transmission Date: 20090109
  Serious: Yes (Life-Threatening)
  Sender: FDA-Public Use
  Company Number: US-BOEHRINGER INGELHEIM GMBH, GERMANY-2008-BP-11537BP

PATIENT
  Sex: Female

DRUGS (1)
  1. MICARDIS [Suspect]

REACTIONS (1)
  - ANGIOEDEMA [None]
